FAERS Safety Report 6108209-6 (Version None)
Quarter: 2009Q1

REPORT INFORMATION
  Report Type: 
  Country: None (occurrence: None)
  Receive Date: 20090305
  Receipt Date: 20090305
  Transmission Date: 20090719
  Serious: Yes (Hospitalization)
  Sender: FDA-Public Use
  Company Number: None

PATIENT
  Sex: Female
  Weight: 51.4 kg

DRUGS (1)
  1. CISPLATIN [Suspect]
     Dosage: 65 MG
     Dates: end: 20081020

REACTIONS (10)
  - ALPHA HAEMOLYTIC STREPTOCOCCAL INFECTION [None]
  - ANXIETY [None]
  - DEHYDRATION [None]
  - ESCHERICHIA INFECTION [None]
  - HYPERTENSION [None]
  - INTESTINAL OBSTRUCTION [None]
  - PELVIC FLUID COLLECTION [None]
  - PERIRECTAL ABSCESS [None]
  - RECTAL ABSCESS [None]
  - TACHYCARDIA [None]
